FAERS Safety Report 13381548 (Version 2)
Quarter: 2017Q1

REPORT INFORMATION
  Report Type: Spontaneous
  Country: US (occurrence: US)
  Receive Date: 20170329
  Receipt Date: 20170329
  Transmission Date: 20170429
  Serious: Yes (Other)
  Sender: FDA-Public Use
  Company Number: US-ALLERGAN-1711412US

PATIENT
  Age: 78 Year
  Sex: Female

DRUGS (3)
  1. NAMENDA [Suspect]
     Active Substance: MEMANTINE HYDROCHLORIDE
     Indication: AMNESIA
     Dosage: 10 MG, QD
     Route: 048
     Dates: start: 2015
  2. NAMENDA [Suspect]
     Active Substance: MEMANTINE HYDROCHLORIDE
     Indication: COGNITIVE DISORDER
  3. ARICEPT [Concomitant]
     Active Substance: DONEPEZIL HYDROCHLORIDE
     Indication: AMNESIA
     Dosage: UNK
     Route: 048

REACTIONS (5)
  - Back pain [Not Recovered/Not Resolved]
  - Osteoporosis [Not Recovered/Not Resolved]
  - Allergic cough [Not Recovered/Not Resolved]
  - Off label use [Unknown]
  - Breast cancer recurrent [Not Recovered/Not Resolved]

NARRATIVE: CASE EVENT DATE: 2015
